FAERS Safety Report 15360698 (Version 1)
Quarter: 2018Q3

REPORT INFORMATION
  Report Type: Spontaneous
  Country: US (occurrence: US)
  Receive Date: 20180907
  Receipt Date: 20180907
  Transmission Date: 20181010
  Serious: No
  Sender: FDA-Public Use
  Company Number: US-BIOGEN-2018BI00627280

PATIENT
  Age: 61 Year
  Sex: Male

DRUGS (1)
  1. PLEGRIDY [Suspect]
     Active Substance: PEGINTERFERON BETA-1A
     Indication: MULTIPLE SCLEROSIS
     Route: 058
     Dates: start: 20170918

REACTIONS (4)
  - Paraesthesia [Unknown]
  - Accidental underdose [Unknown]
  - Hypoaesthesia [Unknown]
  - Device malfunction [Unknown]

NARRATIVE: CASE EVENT DATE: 20180824
